FAERS Safety Report 23457419 (Version 1)
Quarter: 2024Q1

REPORT INFORMATION
  Report Type: Spontaneous
  Country: CH (occurrence: CH)
  Receive Date: 20240130
  Receipt Date: 20240130
  Transmission Date: 20240410
  Serious: Yes (Death)
  Sender: FDA-Public Use
  Company Number: CH-ACRAF SpA-2024-033312

PATIENT

DRUGS (2)
  1. XCOPRI [Suspect]
     Active Substance: CENOBAMATE
     Indication: Temporal lobe epilepsy
     Dosage: 25 MILLIGRAM
     Route: 048
  2. XCOPRI [Suspect]
     Active Substance: CENOBAMATE
     Indication: Psychogenic seizure

REACTIONS (6)
  - Sudden death [Fatal]
  - Aortic dissection [Fatal]
  - Bradycardia [Fatal]
  - Hypotension [Fatal]
  - Chest pain [Fatal]
  - Back pain [Fatal]
